FAERS Safety Report 8213049-8 (Version None)
Quarter: 2012Q1

REPORT INFORMATION
  Report Type: 
  Country: None (occurrence: None)
  Receive Date: 20120315
  Receipt Date: 20120312
  Transmission Date: 20120608
  Serious: Yes (Other)
  Sender: FDA-Public Use
  Company Number: US-PFIZER INC-2012049892

PATIENT
  Sex: Male

DRUGS (3)
  1. LYRICA [Suspect]
     Indication: LUMBAR RADICULOPATHY
     Dosage: 75 MG, 2X/DAY
     Route: 048
     Dates: start: 20100101
  2. NAPROSYN [Concomitant]
     Indication: PAIN
     Dosage: 500 MG, 2X/DAY PRN
     Route: 048
  3. VICODIN [Concomitant]
     Indication: PAIN
     Dosage: 5/500 QBH PRN

REACTIONS (2)
  - BREATH ALCOHOL TEST POSITIVE [None]
  - IMPAIRED DRIVING ABILITY [None]
